FAERS Safety Report 20446084 (Version 3)
Quarter: 2022Q1

REPORT INFORMATION
  Report Type: Report from Study
  Country: CN (occurrence: CN)
  Receive Date: 20220208
  Receipt Date: 20220303
  Transmission Date: 20220423
  Serious: Yes (Hospitalization)
  Sender: FDA-Public Use
  Company Number: CN-KARYOPHARM-2022KPT000129

PATIENT
  Age: 69 Year
  Sex: Female
  Weight: 59 kg

DRUGS (18)
  1. RITUXIMAB [Suspect]
     Active Substance: RITUXIMAB
     Indication: Diffuse large B-cell lymphoma
     Dosage: 375 MG/M2, 1X/3 WEEKS (DAY 1 OF A 21-DAY CYCLE), INTRAVENOUS
     Route: 042
     Dates: start: 20211224, end: 20220203
  2. RITUXIMAB [Suspect]
     Active Substance: RITUXIMAB
     Dosage: 375 MG/M2, 1X/3 WEEKS (DAY 1 OF A 21-DAY CYCLE), INTRAVENOUS
     Route: 042
     Dates: start: 20220216
  3. GEMCITABINE [Suspect]
     Active Substance: GEMCITABINE
     Indication: Diffuse large B-cell lymphoma
     Dosage: 1000 MG/M2, DAYS 1 AND 8 OF A 21-DAY CYCLE, INTRAVENOUS
     Route: 042
     Dates: start: 20211224, end: 20220203
  4. GEMCITABINE [Suspect]
     Active Substance: GEMCITABINE
     Dosage: 666.7 MG/M2, DAYS 1 AND 8 OF A 21-DAY CYCLE, INTRAVENOUS
     Route: 042
     Dates: start: 20220216
  5. DEXAMETHASONE [Suspect]
     Active Substance: DEXAMETHASONE
     Indication: Diffuse large B-cell lymphoma
     Dosage: 20 MG, DAYS 1, 2, 3, AND 4 OF A 21-DAY CYCLE, ORAL
     Route: 048
     Dates: start: 20211224, end: 20220203
  6. DEXAMETHASONE [Suspect]
     Active Substance: DEXAMETHASONE
     Dosage: 20 MG, DAYS 1, 2, 3, AND 4 OF A 21-DAY CYCLE, ORAL
     Route: 048
     Dates: start: 20220216
  7. CISPLATIN [Suspect]
     Active Substance: CISPLATIN
     Indication: Diffuse large B-cell lymphoma
     Dosage: 75 MG/M2, 1X/3 WEEKS (DAY 1 OF A 21-DAY CYCLE), INTRAVENOUS
     Route: 042
     Dates: start: 20211224, end: 20220203
  8. CISPLATIN [Suspect]
     Active Substance: CISPLATIN
     Dosage: 37.3 MG/M2, 1X/3 WEEKS (DAY 1 OF A 21-DAY CYCLE), INTRAVENOUS
     Route: 042
     Dates: start: 20220216
  9. OMEPRAZOLE [Concomitant]
     Active Substance: OMEPRAZOLE
     Indication: Gastrooesophageal reflux prophylaxis
     Dosage: 20 MG, ONCE, ORAL
     Route: 048
     Dates: start: 20211224
  10. ENTECAVIR [Concomitant]
     Active Substance: ENTECAVIR
     Indication: Prophylaxis
     Dosage: 0.5 MG, QN, ORAL
     Route: 048
     Dates: start: 20211224
  11. GLIPIZIDE AND METFORMIN HCL [Concomitant]
     Active Substance: GLIPIZIDE\METFORMIN HYDROCHLORIDE
     Indication: Diabetes mellitus
     Dosage: 2 TABLETS, BID, ORAL
     Route: 048
     Dates: start: 2005
  12. PALONOSETRON [Concomitant]
     Active Substance: PALONOSETRON
     Indication: Prophylaxis of nausea and vomiting
     Dosage: 0.5 MG, SINGLE
     Route: 048
     Dates: start: 20220107, end: 20220107
  13. PALONOSETRON [Concomitant]
     Active Substance: PALONOSETRON
     Dosage: 0.5 MG, (D1/D8) SINGLE
     Route: 048
     Dates: start: 20220114, end: 20220114
  14. PALONOSETRON [Concomitant]
     Active Substance: PALONOSETRON
     Dosage: 0.5 MG, (D1/D8) SINGLE
     Route: 048
     Dates: start: 20220120, end: 20220120
  15. APREPITANT [Concomitant]
     Active Substance: APREPITANT
     Indication: Prophylaxis of nausea and vomiting
     Dosage: 125 MG/80 MG (D1-D3), QD
     Dates: start: 20220107, end: 20220109
  16. APREPITANT [Concomitant]
     Active Substance: APREPITANT
     Dosage: 125 MG, SINGLE
     Route: 048
     Dates: start: 20220114, end: 20220114
  17. APREPITANT [Concomitant]
     Active Substance: APREPITANT
     Dosage: 80 MG, QD
     Route: 048
     Dates: start: 20220115, end: 20220116
  18. GLIPIZIDE [Concomitant]
     Active Substance: GLIPIZIDE
     Indication: Diabetes mellitus
     Dosage: 2 TABLET, BID, ORAL
     Route: 048
     Dates: start: 2005

REACTIONS (1)
  - Platelet count decreased [Recovered/Resolved]

NARRATIVE: CASE EVENT DATE: 20220128
